FAERS Safety Report 8523201-X (Version None)
Quarter: 2012Q3

REPORT INFORMATION
  Report Type: 
  Country: None (occurrence: None)
  Receive Date: 20120713
  Receipt Date: 20120713
  Transmission Date: 20120928
  Serious: Yes (Hospitalization)
  Sender: FDA-Public Use
  Company Number: None

PATIENT
  Age: 47 Year
  Sex: Male
  Weight: 100 kg

DRUGS (1)
  1. DABIGATRAN -PRADAXA- CAPSULE 150MG BOEHRINGER INGELHEIM [Suspect]
     Indication: ATRIAL FIBRILLATION
     Dosage: 150 MG BID PO
     Route: 048
     Dates: start: 20120706, end: 20120709

REACTIONS (10)
  - HYPOTENSION [None]
  - ASCITES [None]
  - ATRIAL FIBRILLATION [None]
  - COAGULOPATHY [None]
  - LIVER INJURY [None]
  - URINE OUTPUT DECREASED [None]
  - LIVER FUNCTION TEST ABNORMAL [None]
  - BLOOD BILIRUBIN UNCONJUGATED INCREASED [None]
  - PRESYNCOPE [None]
  - HEPATOMEGALY [None]
